FAERS Safety Report 16184511 (Version 1)
Quarter: 2019Q2

REPORT INFORMATION
  Report Type: Report from Study
  Country: US (occurrence: US)
  Receive Date: 20190411
  Receipt Date: 20190411
  Transmission Date: 20190711
  Serious: Yes (Hospitalization)
  Sender: FDA-Public Use
  Company Number: US-ADAMAS PHARMA, LLC-2019ADA00728

PATIENT
  Sex: Male

DRUGS (5)
  1. GOCOVRI [Suspect]
     Active Substance: AMANTADINE
     Indication: UNEVALUABLE EVENT
     Dosage: 274 MG, 1X/DAY AT BEDTIME
     Dates: start: 20181204
  2. GOCOVRI [Suspect]
     Active Substance: AMANTADINE
     Indication: DYSKINESIA
  3. PROZAC [Concomitant]
     Active Substance: FLUOXETINE HYDROCHLORIDE
  4. GOCOVRI [Suspect]
     Active Substance: AMANTADINE
     Indication: DYSTONIA
  5. UNSPECIFIED LEVADOPA-BASED THERAPY [Concomitant]

REACTIONS (1)
  - Behaviour disorder [Not Recovered/Not Resolved]
